FAERS Safety Report 19101075 (Version 2)
Quarter: 2021Q2

REPORT INFORMATION
  Report Type: Other
  Country: US (occurrence: US)
  Receive Date: 20210407
  Receipt Date: 20210514
  Transmission Date: 20210717
  Serious: Yes (Death, Hospitalization, Other)
  Sender: FDA-Public Use
  Company Number: US-ROCHE-2804842

PATIENT
  Sex: Female
  Weight: 86.9 kg

DRUGS (6)
  1. XOLAIR [Suspect]
     Active Substance: OMALIZUMAB
     Indication: ASTHMA
     Dosage: INJECT 375MG SUBCUTANEOUSLY EVERY 2 WEEK(S), ONGOING NO?THE PATIENT TAKES LAST DOSE ON 25/JAN/2021
     Route: 058
  2. XOLAIR [Suspect]
     Active Substance: OMALIZUMAB
  3. XOLAIR [Suspect]
     Active Substance: OMALIZUMAB
     Dosage: INJECT 375MG SUBCUTANEOUSLY EVERY 2 WEEK(S)
     Route: 058
  4. XOLAIR [Suspect]
     Active Substance: OMALIZUMAB
  5. XOLAIR [Suspect]
     Active Substance: OMALIZUMAB
  6. XOLAIR [Suspect]
     Active Substance: OMALIZUMAB

REACTIONS (4)
  - Septic shock [Fatal]
  - Colitis ischaemic [Fatal]
  - Acute kidney injury [Unknown]
  - Bacteraemia [Fatal]
